FAERS Safety Report 6155088-7 (Version None)
Quarter: 2009Q2

REPORT INFORMATION
  Report Type: 
  Country: None (occurrence: None)
  Receive Date: 20090410
  Receipt Date: 20090331
  Transmission Date: 20091009
  Serious: Yes (Death)
  Sender: FDA-Public Use
  Company Number: 09GB001147

PATIENT
  Age: 68 Year
  Sex: Male
  Weight: 90 kg

DRUGS (11)
  1. PAROXETINE HCL [Suspect]
     Indication: DRUG USE FOR UNKNOWN INDICATION
  2. ACETAMINOPHEN [Suspect]
     Indication: DRUG USE FOR UNKNOWN INDICATION
  3. ACETAMINOPHEN W/ CODEINE [Suspect]
     Indication: DRUG USE FOR UNKNOWN INDICATION
  4. CANDESARTAN CILEXETIL [Concomitant]
  5. CETIRIZINE HCL [Concomitant]
  6. DIAZEPAM [Concomitant]
  7. MOMETASONE FUROATE [Concomitant]
  8. OMEPRAZOLE [Concomitant]
  9. SIMVASTATIN [Concomitant]
  10. VENLAFAXINE HCL [Concomitant]
  11. ZOPICLONE (ZOPICLONE) [Concomitant]

REACTIONS (2)
  - OVERDOSE [None]
  - PLATELET COUNT DECREASED [None]
